FAERS Safety Report 7373403-3 (Version None)
Quarter: 2011Q1

REPORT INFORMATION
  Report Type: 
  Country: None (occurrence: None)
  Receive Date: 20110325
  Receipt Date: 20110322
  Transmission Date: 20110831
  Serious: Yes (Hospitalization)
  Sender: FDA-Public Use
  Company Number: SE-ABBOTT-11P-150-0713520-00

PATIENT
  Age: 66 Year
  Sex: Female

DRUGS (2)
  1. METHOTREXATE [Concomitant]
     Indication: PRODUCT USED FOR UNKNOWN INDICATION
  2. HUMIRA [Suspect]
     Indication: PSORIASIS
     Dosage: ONE START DOSE WITH 40 MG
     Dates: start: 20110317

REACTIONS (3)
  - PYREXIA [None]
  - UROSEPSIS [None]
  - C-REACTIVE PROTEIN INCREASED [None]
